FAERS Safety Report 9722917 (Version 1)
Quarter: 2013Q4

REPORT INFORMATION
  Report Type: Spontaneous
  Country: US (occurrence: None)
  Receive Date: 20131127
  Receipt Date: 20131127
  Transmission Date: 20140711
  Serious: Yes (Other)
  Sender: FDA-Public Use
  Company Number: None

PATIENT
  Age: 44 Year
  Sex: Female
  Weight: 70.31 kg

DRUGS (1)
  1. CITALOPRAM [Suspect]
     Indication: DEPRESSION
     Dosage: 1.5 PILLS ONCE DAILY TAKEN BY MOUTH
     Dates: start: 20130401, end: 20130930

REACTIONS (11)
  - Suicidal ideation [None]
  - Depression [None]
  - Irritability [None]
  - Weight increased [None]
  - Middle insomnia [None]
  - Activities of daily living impaired [None]
  - Product substitution issue [None]
  - Impaired work ability [None]
  - Marital problem [None]
  - Disturbance in attention [None]
  - Bruxism [None]
